FAERS Safety Report 5569724-7 (Version None)
Quarter: 2007Q4

REPORT INFORMATION
  Report Type: 
  Country: None (occurrence: None)
  Receive Date: 20071220
  Receipt Date: 20071212
  Transmission Date: 20080405
  Serious: Yes (Hospitalization)
  Sender: FDA-Public Use
  Company Number: US-ABBOTT-07P-163-0430484-00

PATIENT
  Sex: Female
  Weight: 130 kg

DRUGS (3)
  1. DEPAKOTE [Suspect]
     Indication: SCHIZOPHRENIA
     Route: 048
     Dates: start: 19820101
  2. OLANZAPINE [Concomitant]
     Indication: SCHIZOPHRENIA
     Route: 048
  3. RISPERIDONE [Concomitant]
     Indication: SCHIZOPHRENIA
     Route: 048

REACTIONS (4)
  - INSOMNIA [None]
  - LOSS OF CONSCIOUSNESS [None]
  - MENTAL DISORDER [None]
  - NAUSEA [None]
